FAERS Safety Report 11253801 (Version 3)
Quarter: 2015Q4

REPORT INFORMATION
  Report Type: Report from Study
  Country: SI (occurrence: SI)
  Receive Date: 20150709
  Receipt Date: 20151029
  Transmission Date: 20160304
  Serious: Yes (Other)
  Sender: FDA-Public Use
  Company Number: SI-BAYER-2015-372228

PATIENT
  Age: 80 Year
  Sex: Male

DRUGS (10)
  1. LANITOP [Concomitant]
     Active Substance: METILDIGOXIN
     Dosage: 1 DF, OM
  2. LYRICA [Concomitant]
     Active Substance: PREGABALIN
     Dosage: 75 MG, BID
  3. ENAP [Concomitant]
     Active Substance: ENALAPRIL
     Dosage: 20 MG, BID
  4. PANTOPRAZOLE [Concomitant]
     Active Substance: PANTOPRAZOLE SODIUM
     Dosage: 20 MG, OM
  5. STIVARGA [Suspect]
     Active Substance: REGORAFENIB
     Indication: COLORECTAL CANCER METASTATIC
     Dosage: 160 MG, QD (DAILY DOSE)
     Route: 048
     Dates: start: 20150622, end: 20150703
  6. CONCOR [Concomitant]
     Active Substance: BISOPROLOL FUMARATE
     Dosage: 2.5 MG, OM
  7. PROSTIDE [Concomitant]
     Dosage: 1 DF, QD
  8. FRAGMIN [DALTEPARIN SODIUM] [Concomitant]
     Dosage: 15000 IU, QD
  9. TANYZ [Concomitant]
     Dosage: 1 DF, UNK
  10. LEKADOL [Concomitant]
     Active Substance: ACETAMINOPHEN
     Dosage: 2 DF, TID

REACTIONS (9)
  - Left ventricular hypertrophy [None]
  - Pulmonary hypertension [Recovering/Resolving]
  - Dyspnoea [None]
  - Tricuspid valve incompetence [None]
  - Atrial fibrillation [None]
  - Pulmonary embolism [Recovered/Resolved]
  - Mitral valve incompetence [None]
  - Pleural effusion [None]
  - Dilatation atrial [None]

NARRATIVE: CASE EVENT DATE: 20150702
